FAERS Safety Report 23845918 (Version 1)
Quarter: 2024Q2

REPORT INFORMATION
  Report Type: Spontaneous
  Country: US (occurrence: US)
  Receive Date: 20240512
  Receipt Date: 20240512
  Transmission Date: 20240716
  Serious: No
  Sender: FDA-Public Use
  Company Number: US-CIPLA LTD.-2024US00685

PATIENT

DRUGS (3)
  1. ALBUTEROL [Suspect]
     Active Substance: ALBUTEROL
     Indication: Pneumonia
     Dosage: UNK
     Route: 065
     Dates: start: 20231119, end: 20231121
  2. ELIQUIS [Concomitant]
     Active Substance: APIXABAN
     Indication: Anticoagulant therapy
     Dosage: 5 MILLIGRAM, BID ( TWICE A DAY (ONE IN THE MORNING AND ONE IN THE NIGHT)
     Route: 065
     Dates: start: 202312
  3. ELIQUIS [Concomitant]
     Active Substance: APIXABAN
     Indication: Pneumonia

REACTIONS (2)
  - Off label use [Unknown]
  - Device delivery system issue [Unknown]

NARRATIVE: CASE EVENT DATE: 20231120
